FAERS Safety Report 16987007 (Version 1)
Quarter: 2019Q4

REPORT INFORMATION
  Report Type: Spontaneous
  Country: US (occurrence: US)
  Receive Date: 20191102
  Receipt Date: 20191102
  Transmission Date: 20200122
  Serious: No
  Sender: FDA-Public Use
  Company Number: US-TEVA-2019-US-1132644

PATIENT
  Age: 84 Year
  Sex: Female

DRUGS (1)
  1. HYDRALAZINE HYDROCHLORIDE-HYDROCHLOROTHIAZIDE-RESERPINE [Suspect]
     Active Substance: HYDRALAZINE HYDROCHLORIDE\HYDROCHLOROTHIAZIDE\RESERPINE
     Route: 065

REACTIONS (4)
  - Migraine [Unknown]
  - Ocular discomfort [Unknown]
  - Nausea [Unknown]
  - Sleep disorder [Unknown]
